FAERS Safety Report 7466881-2 (Version None)
Quarter: 2011Q2

REPORT INFORMATION
  Report Type: 
  Country: None (occurrence: None)
  Receive Date: 20110509
  Receipt Date: 20101215
  Transmission Date: 20111010
  Serious: Yes (Hospitalization, Other)
  Sender: FDA-Public Use
  Company Number: US-BAYER-201028020NA

PATIENT
  Age: 29 Year
  Sex: Female
  Weight: 62.585 kg

DRUGS (11)
  1. HYOSCYAMINE [Concomitant]
  2. FLAX SEED OIL [Concomitant]
     Dosage: 1000 MG, QD
  3. CLARITIN [Concomitant]
  4. YAZ [Suspect]
     Indication: PRODUCT USED FOR UNKNOWN INDICATION
     Dosage: UNK UNK, QD
     Route: 048
     Dates: start: 20060501, end: 20090701
  5. ALLEGRA [Concomitant]
     Dosage: 180 MG, UNK
  6. FISH OIL [Concomitant]
     Dosage: 1200 MG, QD
  7. MULTI-VITAMIN [Concomitant]
     Dosage: UNK UNK, QD
  8. NAPROXEN [Concomitant]
     Dosage: 500 MG, UNK
  9. MEDROL [Concomitant]
  10. HYDROCODONE BITARTRATE AND ACETAMINOPHEN [Concomitant]
     Dosage: 500 MG, UNK
  11. FLONASE [Concomitant]
     Dosage: UNK UNK, PRN
     Route: 045

REACTIONS (6)
  - PAIN [None]
  - CONTUSION [None]
  - DEEP VEIN THROMBOSIS [None]
  - MUSCULOSKELETAL PAIN [None]
  - PULMONARY EMBOLISM [None]
  - INJECTION SITE PAIN [None]
